FAERS Safety Report 7469825-2 (Version None)
Quarter: 2011Q2

REPORT INFORMATION
  Report Type: 
  Country: None (occurrence: None)
  Receive Date: 20110510
  Receipt Date: 20110502
  Transmission Date: 20111010
  Serious: Yes (Hospitalization)
  Sender: FDA-Public Use
  Company Number: US-US-EMD SERONO, INC.-7018764

PATIENT
  Sex: Female
  Weight: 91 kg

DRUGS (4)
  1. REBIF [Suspect]
     Indication: MULTIPLE SCLEROSIS
     Route: 058
     Dates: start: 20090618
  2. RAPID RELEASE TYLENOL [Concomitant]
     Indication: PREMEDICATION
  3. PNEUMONIA VACCINE [Concomitant]
     Dates: start: 20101027, end: 20101027
  4. PNEUMONIA VACCINE [Concomitant]
     Dates: start: 20080101, end: 20080101

REACTIONS (7)
  - CARDIAC SEPTAL DEFECT [None]
  - VACCINATION COMPLICATION [None]
  - PULMONARY HYPERTENSION [None]
  - MULTIPLE SCLEROSIS RELAPSE [None]
  - HYPOTHYROIDISM [None]
  - INJECTION SITE ERYTHEMA [None]
  - INJECTION SITE PAIN [None]
